FAERS Safety Report 16010052 (Version 2)
Quarter: 2019Q2

REPORT INFORMATION
  Report Type: Report from Study
  Country: None (occurrence: US)
  Receive Date: 20190227
  Receipt Date: 20190507
  Transmission Date: 20190711
  Serious: Yes (Hospitalization)
  Sender: FDA-Public Use
  Company Number: US-ABBVIE-18K-163-2608704-00

PATIENT
  Age: 10 Year
  Sex: Female

DRUGS (2)
  1. HUMIRA [Suspect]
     Active Substance: ADALIMUMAB
     Indication: JUVENILE IDIOPATHIC ARTHRITIS
     Route: 058
     Dates: start: 201811, end: 20190206
  2. HUMIRA [Suspect]
     Active Substance: ADALIMUMAB
     Route: 058
     Dates: start: 2019

REACTIONS (11)
  - Malaise [Unknown]
  - Loss of personal independence in daily activities [Unknown]
  - Victim of abuse [Unknown]
  - Insomnia [Unknown]
  - Pain [Unknown]
  - Fear [Unknown]
  - Depressed mood [Unknown]
  - Somnambulism [Recovering/Resolving]
  - Pain [Recovered/Resolved]
  - Asthenia [Unknown]
  - Headache [Not Recovered/Not Resolved]

NARRATIVE: CASE EVENT DATE: 2018
